FAERS Safety Report 4943886-4 (Version None)
Quarter: 2006Q1

REPORT INFORMATION
  Report Type: 
  Country: None (occurrence: None)
  Receive Date: 20060310
  Receipt Date: 20060225
  Transmission Date: 20060701
  Serious: Yes (Hospitalization)
  Sender: FDA-Public Use
  Company Number: 2006028023

PATIENT
  Sex: Male
  Weight: 97.5234 kg

DRUGS (3)
  1. VIAGRA [Suspect]
     Indication: ERECTILE DYSFUNCTION
     Dosage: (100 MG)
  2. ATENOLOL [Concomitant]
  3. LISINOPRIL [Concomitant]

REACTIONS (6)
  - DIABETES MELLITUS [None]
  - DRUG EFFECT DECREASED [None]
  - FLUSHING [None]
  - GANGRENE [None]
  - LIMB INJURY [None]
  - TOE AMPUTATION [None]
